FAERS Safety Report 23060147 (Version 2)
Quarter: 2023Q4

REPORT INFORMATION
  Report Type: Spontaneous
  Country: US (occurrence: US)
  Receive Date: 20231012
  Receipt Date: 20231106
  Transmission Date: 20240109
  Serious: Yes (Other)
  Sender: FDA-Public Use
  Company Number: US-BRISTOL-MYERS SQUIBB COMPANY-2023-143242

PATIENT
  Age: 55 Year
  Sex: Female

DRUGS (2)
  1. SPRYCEL [Suspect]
     Active Substance: DASATINIB
     Indication: Chronic lymphocytic leukaemia
     Route: 048
     Dates: start: 202107
  2. SPRYCEL [Suspect]
     Active Substance: DASATINIB
     Route: 048
     Dates: start: 202107

REACTIONS (6)
  - Fatigue [Unknown]
  - Arthralgia [Unknown]
  - Full blood count increased [Unknown]
  - Drug ineffective [Unknown]
  - Hypersomnia [Unknown]
  - Off label use [Unknown]
